FAERS Safety Report 14034191 (Version 1)
Quarter: 2017Q4

REPORT INFORMATION
  Report Type: Spontaneous
  Country: US (occurrence: US)
  Receive Date: 20171003
  Receipt Date: 20171003
  Transmission Date: 20180321
  Serious: Yes (Other)
  Sender: FDA-Public Use
  Company Number: US-TEVA-760251USA

PATIENT
  Sex: Male

DRUGS (20)
  1. CLONAZEPAM. [Interacting]
     Active Substance: CLONAZEPAM
     Indication: ARTHRALGIA
  2. FIBER CAPSULES [Concomitant]
     Dosage: CAPSULES DAILY
  3. GABAPENTIN. [Concomitant]
     Active Substance: GABAPENTIN
     Indication: NEURALGIA
  4. NEXIUM [Concomitant]
     Active Substance: ESOMEPRAZOLE MAGNESIUM
     Indication: GASTROOESOPHAGEAL REFLUX DISEASE
     Dosage: 80 MILLIGRAM DAILY;
     Route: 065
  5. TRAMADOL IR [Concomitant]
     Active Substance: TRAMADOL
     Indication: GROIN PAIN
     Dosage: 100 MILLIGRAM DAILY;
  6. SYNTHROID [Concomitant]
     Active Substance: LEVOTHYROXINE SODIUM
     Indication: SUPPLEMENTATION THERAPY
     Dosage: 137 MICROGRAM DAILY;
     Route: 065
  7. VITAMIN D3 [Concomitant]
     Active Substance: CHOLECALCIFEROL
     Dosage: 1000 IU (INTERNATIONAL UNIT) DAILY;
     Route: 065
  8. PROBIOTIC COMPLEX [Concomitant]
     Dosage: 1 TABLET
  9. TESTOSTERONE. [Concomitant]
     Active Substance: TESTOSTERONE
     Indication: SUPPLEMENTATION THERAPY
  10. VITAMIN D2 [Concomitant]
     Active Substance: ERGOCALCIFEROL
     Dosage: .1786 MILLIGRAM DAILY;
     Route: 065
  11. MULTIVITAMIN (MENS 50+) [Concomitant]
  12. CLONAZEPAM. [Suspect]
     Active Substance: CLONAZEPAM
     Indication: MUSCLE SPASMS
     Dosage: 1.5 MILLIGRAM DAILY;
     Route: 048
     Dates: start: 200611
  13. GABAPENTIN. [Concomitant]
     Active Substance: GABAPENTIN
     Indication: GROIN PAIN
  14. CITRACAL [Concomitant]
     Active Substance: CALCIUM CITRATE
     Dosage: 1260 MILLIGRAM DAILY;
  15. VITAMIN C (ROSE HIPS) [Concomitant]
     Dosage: 1000 MILLIGRAM DAILY;
     Route: 065
  16. CLONAZEPAM. [Interacting]
     Active Substance: CLONAZEPAM
     Indication: BACK PAIN
  17. TRAMADOL ER [Interacting]
     Active Substance: TRAMADOL HYDROCHLORIDE
     Indication: GROIN PAIN
  18. MIRALAX [Concomitant]
     Active Substance: POLYETHYLENE GLYCOL 3350
     Dosage: ONCE A DAY
  19. HYDROXYCHLOROQUINE [Concomitant]
     Active Substance: HYDROXYCHLOROQUINE
     Indication: ARTHROPATHY
     Dosage: 400 MILLIGRAM DAILY;
     Route: 065
  20. VITAMIN D3 [Concomitant]
     Active Substance: CHOLECALCIFEROL
     Dosage: 2000 IU (INTERNATIONAL UNIT) DAILY;
     Route: 065

REACTIONS (7)
  - Drug dependence [Not Recovered/Not Resolved]
  - Dizziness [Not Recovered/Not Resolved]
  - Drug dose omission [Unknown]
  - Intentional product use issue [Not Recovered/Not Resolved]
  - Somnolence [Not Recovered/Not Resolved]
  - Pain [Unknown]
  - Drug interaction [Unknown]

NARRATIVE: CASE EVENT DATE: 200611
